FAERS Safety Report 5548344-4 (Version None)
Quarter: 2007Q4

REPORT INFORMATION
  Report Type: 
  Country: None (occurrence: None)
  Receive Date: 20071211
  Receipt Date: 20071204
  Transmission Date: 20080405
  Serious: Yes (Other)
  Sender: FDA-Public Use
  Company Number: US-GILEAD-2007-0014515

PATIENT
  Sex: Female
  Weight: 94.432 kg

DRUGS (6)
  1. LETAIRIS [Suspect]
     Indication: PULMONARY HYPERTENSION
     Route: 048
     Dates: start: 20071101
  2. QVAR 40 [Concomitant]
     Indication: ASTHMA
  3. ALBUTEROL [Concomitant]
     Indication: CHRONIC OBSTRUCTIVE PULMONARY DISEASE
  4. GABAPENTIN [Concomitant]
     Indication: FIBROMYALGIA
  5. FLUOXETINE [Concomitant]
     Indication: DEPRESSION
  6. TYLENOL [Concomitant]
     Indication: PAIN

REACTIONS (2)
  - NAUSEA [None]
  - OEDEMA PERIPHERAL [None]
